FAERS Safety Report 4401783-7 (Version None)
Quarter: 2004Q3

REPORT INFORMATION
  Report Type: 
  Country: None (occurrence: None)
  Receive Date: 20040719
  Receipt Date: 20040630
  Transmission Date: 20050211
  Serious: Yes (Other)
  Sender: FDA-Public Use
  Company Number: JP-AMGEN-US082489

PATIENT
  Sex: Female
  Weight: 50 kg

DRUGS (6)
  1. ENBREL [Suspect]
     Indication: RHEUMATOID ARTHRITIS
     Route: 058
     Dates: start: 20020329
  2. PREDNISOLONE [Concomitant]
     Route: 048
     Dates: start: 20021203
  3. LOXOPROFEN [Concomitant]
     Route: 048
     Dates: start: 20030214
  4. REBAMIPIDE [Concomitant]
     Route: 048
     Dates: start: 20010101
  5. FELBINAC [Concomitant]
     Route: 062
     Dates: start: 20040507
  6. KETOPROFEN [Concomitant]
     Route: 062
     Dates: start: 20020818

REACTIONS (1)
  - ACOUSTIC NEUROMA [None]
